FAERS Safety Report 16005401 (Version 1)
Quarter: 2019Q1

REPORT INFORMATION
  Report Type: Spontaneous
  Country: US (occurrence: US)
  Receive Date: 20190226
  Receipt Date: 20190226
  Transmission Date: 20190418
  Serious: Yes (Other)
  Sender: FDA-Public Use
  Company Number: None

PATIENT
  Age: 79 Year
  Sex: Female
  Weight: 54 kg

DRUGS (1)
  1. AMLOPIDINE BESYLATE 5 MG PO DAILY. [Suspect]
     Active Substance: AMLODIPINE BESYLATE
     Indication: HYPERTENSION
     Dosage: ?          QUANTITY:1 TABLET(S);OTHER ROUTE:MOUTH?
     Dates: start: 20190114, end: 20190127

REACTIONS (2)
  - Blood pressure increased [None]
  - Hypoaesthesia [None]

NARRATIVE: CASE EVENT DATE: 20190121
